FAERS Safety Report 7462843-X (Version None)
Quarter: 2011Q2

REPORT INFORMATION
  Report Type: 
  Country: None (occurrence: None)
  Receive Date: 20110506
  Receipt Date: 20110407
  Transmission Date: 20111010
  Serious: Yes (Life-Threatening, Hospitalization)
  Sender: FDA-Public Use
  Company Number: US-BAYER-201039136NA

PATIENT
  Age: 25 Year
  Sex: Female
  Weight: 65 kg

DRUGS (13)
  1. ATROVENT [Concomitant]
  2. YAZ [Suspect]
  3. LEXAPRO [Concomitant]
     Dosage: 20 MG, UNK
     Route: 048
  4. QUAR [Concomitant]
  5. ALBUTEROL [Concomitant]
  6. XOPENEX [Concomitant]
  7. BENADRYL [Concomitant]
  8. WELLBUTRIN [Concomitant]
  9. OMEPRAZOLE [Concomitant]
     Dosage: 20 MG, QD
     Route: 048
  10. NSAID'S [Concomitant]
  11. SPIRIVA [Concomitant]
  12. BACTRIM DS [Concomitant]
  13. CLINDAMYCIN [Concomitant]

REACTIONS (11)
  - NEOPLASM [None]
  - BILIARY DILATATION [None]
  - GASTROINTESTINAL HAEMORRHAGE [None]
  - GALLBLADDER NON-FUNCTIONING [None]
  - ORGAN FAILURE [None]
  - BILE DUCT STONE [None]
  - COLITIS [None]
  - BILE DUCT OBSTRUCTION [None]
  - ABDOMINAL PAIN [None]
  - BILIARY COLIC [None]
  - CHOLELITHIASIS [None]
